FAERS Safety Report 17488078 (Version 14)
Quarter: 2025Q1

REPORT INFORMATION
  Report Type: Spontaneous
  Country: US (occurrence: US)
  Receive Date: 20200303
  Receipt Date: 20250102
  Transmission Date: 20250408
  Serious: Yes (Other)
  Sender: PFIZER
  Company Number: US-PFIZER INC-2020093678

PATIENT
  Age: 80 Year
  Sex: Female
  Weight: 77.11 kg

DRUGS (3)
  1. XELJANZ XR [Suspect]
     Active Substance: TOFACITINIB CITRATE
     Route: 048
  2. XELJANZ XR [Suspect]
     Active Substance: TOFACITINIB CITRATE
     Dosage: 11 MG, DAILY
     Route: 048
  3. XELJANZ XR [Suspect]
     Active Substance: TOFACITINIB CITRATE
     Dosage: 11 MG, 1X/DAY
     Route: 048
     Dates: end: 202410

REACTIONS (12)
  - Mental impairment [Unknown]
  - Dysgeusia [Unknown]
  - Malaise [Not Recovered/Not Resolved]
  - Visual impairment [Unknown]
  - Drug hypersensitivity [Unknown]
  - Arthritis [Unknown]
  - Pain [Not Recovered/Not Resolved]
  - Pruritus [Unknown]
  - Fatigue [Unknown]
  - Vertigo [Unknown]
  - Rash [Unknown]
  - Dry skin [Unknown]
